FAERS Safety Report 6089063-8 (Version None)
Quarter: 2009Q1

REPORT INFORMATION
  Report Type: 
  Country: None (occurrence: None)
  Receive Date: 20090224
  Receipt Date: 20090218
  Transmission Date: 20090719
  Serious: Yes (Other)
  Sender: FDA-Public Use
  Company Number: B0560144A

PATIENT
  Age: 36 Year
  Sex: Male

DRUGS (3)
  1. CLAMOXYL [Suspect]
     Indication: TOOTH EXTRACTION
     Dosage: 1G SINGLE DOSE
     Route: 048
     Dates: start: 20080417, end: 20080417
  2. IBUPROFEN [Suspect]
     Indication: TOOTH EXTRACTION
     Dosage: 400MG SINGLE DOSE
     Route: 048
     Dates: start: 20080417, end: 20080417
  3. ARTICAINE HYDROCHLORIDE [Concomitant]
     Indication: TOOTH EXTRACTION
     Route: 048
     Dates: start: 20080417, end: 20080417

REACTIONS (8)
  - ANAPHYLACTOID REACTION [None]
  - BRADYCARDIA [None]
  - DYSPNOEA [None]
  - HYPERHIDROSIS [None]
  - LIP OEDEMA [None]
  - LOCALISED OEDEMA [None]
  - LOSS OF CONSCIOUSNESS [None]
  - URTICARIA [None]
